FAERS Safety Report 7980909-2 (Version None)
Quarter: 2011Q4

REPORT INFORMATION
  Report Type: 
  Country: None (occurrence: None)
  Receive Date: 20111215
  Receipt Date: 20111206
  Transmission Date: 20120403
  Serious: Yes (Hospitalization)
  Sender: FDA-Public Use
  Company Number: US-BIOGENIDEC-2011BI023334

PATIENT
  Age: 21 Year
  Sex: Female

DRUGS (4)
  1. TRAMADOL HCL [Concomitant]
     Indication: NECK PAIN
  2. LYRICA [Concomitant]
     Indication: NECK PAIN
     Dates: start: 20110623
  3. TYSABRI [Suspect]
     Indication: MULTIPLE SCLEROSIS
     Route: 042
     Dates: start: 20110425
  4. PERCOCET [Concomitant]
     Indication: NECK PAIN
     Dates: start: 20110623

REACTIONS (14)
  - EPIDURAL ANAESTHESIA [None]
  - HALLUCINATION, AUDITORY [None]
  - LIVER FUNCTION TEST ABNORMAL [None]
  - BALANCE DISORDER [None]
  - POST-TRAUMATIC STRESS DISORDER [None]
  - VOMITING [None]
  - HALLUCINATION [None]
  - MENTAL IMPAIRMENT [None]
  - WHITE BLOOD CELLS URINE [None]
  - NECK PAIN [None]
  - COORDINATION ABNORMAL [None]
  - MIGRAINE [None]
  - NAUSEA [None]
  - INSOMNIA [None]
